FAERS Safety Report 8166718-2 (Version None)
Quarter: 2012Q1

REPORT INFORMATION
  Report Type: 
  Country: None (occurrence: None)
  Receive Date: 20120227
  Receipt Date: 20120222
  Transmission Date: 20120608
  Serious: Yes (Hospitalization)
  Sender: FDA-Public Use
  Company Number: FR-ROCHE-1038951

PATIENT
  Sex: Female
  Weight: 45 kg

DRUGS (10)
  1. ACETAMINOPHEN [Concomitant]
  2. SECTRAL [Concomitant]
  3. TEVAGRASTIM [Concomitant]
  4. PRIMPERAN (FRANCE) [Concomitant]
  5. BENDAMUSTINE [Suspect]
     Indication: CHRONIC LYMPHOCYTIC LEUKAEMIA
     Dosage: DATE OF LAST DOSE PRIOR TO SAE: 21/OCT/2011
     Route: 042
     Dates: start: 20111020
  6. VALACYCLOVIR HYDROCHLORIDE [Concomitant]
  7. MABTHERA [Suspect]
     Indication: CHRONIC LYMPHOCYTIC LEUKAEMIA
     Dosage: DATE OF LAST DOSE PRIOR TO SAE: 20/OCT/2011
     Route: 042
     Dates: start: 20111019
  8. LEVOTHYROXINE SODIUM [Concomitant]
  9. BACTRIM DS [Concomitant]
  10. PAROXETINE HYDROCHLORIDE [Concomitant]

REACTIONS (1)
  - CONSTIPATION [None]
